FAERS Safety Report 10135806 (Version 1)
Quarter: 2014Q2

REPORT INFORMATION
  Report Type: Spontaneous
  Country: GB (occurrence: GB)
  Receive Date: 20140428
  Receipt Date: 20140428
  Transmission Date: 20141212
  Serious: Yes (Other)
  Sender: FDA-Public Use
  Company Number: PHFR2004GB05575

PATIENT
  Sex: Female

DRUGS (1)
  1. CLOZARIL [Suspect]
     Indication: SCHIZOPHRENIA
     Dosage: UNK
     Route: 048
     Dates: start: 20010701

REACTIONS (5)
  - Gestational diabetes [Unknown]
  - Premature labour [Unknown]
  - Anaemia [Unknown]
  - Haemoglobin decreased [Unknown]
  - Maternal exposure during pregnancy [Unknown]
